FAERS Safety Report 12579071 (Version 1)
Quarter: 2016Q3

REPORT INFORMATION
  Report Type: Report from Study
  Country: IT (occurrence: IT)
  Receive Date: 20160721
  Receipt Date: 20160721
  Transmission Date: 20161109
  Serious: Yes (Death)
  Sender: FDA-Public Use
  Company Number: IT-ASTRAZENECA-2016SE78170

PATIENT
  Age: 20280 Day
  Sex: Male

DRUGS (7)
  1. TICAGRELOR [Suspect]
     Active Substance: TICAGRELOR
     Indication: THROMBOSIS PROPHYLAXIS
     Route: 048
     Dates: start: 20150411
  2. FUROSEMIDE. [Concomitant]
     Active Substance: FUROSEMIDE
  3. RAMIPRIL. [Concomitant]
     Active Substance: RAMIPRIL
  4. ATORVASTATINE [Concomitant]
     Active Substance: ATORVASTATIN
  5. ACETYLSALICYLIC ACID [Suspect]
     Active Substance: ASPIRIN
     Indication: THROMBOSIS PROPHYLAXIS
     Route: 048
     Dates: start: 20150411, end: 20150512
  6. METOPROLOLE [Concomitant]
  7. PANTOPRAZOLO [Concomitant]
     Active Substance: PANTOPRAZOLE SODIUM
     Dosage: 20.0MG UNKNOWN

REACTIONS (1)
  - Death [Fatal]

NARRATIVE: CASE EVENT DATE: 20160711
